FAERS Safety Report 10552955 (Version 2)
Quarter: 2014Q4

REPORT INFORMATION
  Report Type: Report from Study
  Country: JP (occurrence: JP)
  Receive Date: 20141029
  Receipt Date: 20141029
  Transmission Date: 20150529
  Serious: Yes (Death)
  Sender: FDA-Public Use
  Company Number: JP-009507513-1312JPN010059

PATIENT
  Age: 60 Year
  Sex: Female
  Weight: 50 kg

DRUGS (16)
  1. TEMODAL [Suspect]
     Active Substance: TEMOZOLOMIDE
     Dosage: 150 MG/M2, QD
     Route: 048
     Dates: start: 20120725, end: 20120729
  2. TEMODAL [Suspect]
     Active Substance: TEMOZOLOMIDE
     Dosage: 200 MG/M2, QD
     Route: 048
     Dates: start: 20130201, end: 20130205
  3. PHENOBAL [Suspect]
     Active Substance: PHENOBARBITAL
     Indication: PROPHYLAXIS
     Dosage: DAILY DOSE 100 MG, DIVIDED DOSE FREQUENCY UNKNOWN, FORMULATION POR
     Route: 048
     Dates: start: 20120206, end: 20120307
  4. TEMODAL [Suspect]
     Active Substance: TEMOZOLOMIDE
     Dosage: 150 MG/M2, QD
     Route: 048
     Dates: start: 20120822, end: 20120826
  5. DEPAKENE [Suspect]
     Active Substance: VALPROIC ACID
     Indication: PROPHYLAXIS
     Dosage: DAILY DOSE 400 MG, FORMULATION POR, SEPARATE NO UNKNOWN
     Route: 048
     Dates: start: 20120125, end: 20120201
  6. TEMODAL [Suspect]
     Active Substance: TEMOZOLOMIDE
     Dosage: 150 MG/M2, QD
     Route: 048
     Dates: start: 20120926, end: 20120930
  7. TEMODAL [Suspect]
     Active Substance: TEMOZOLOMIDE
     Dosage: 150 MG/M2, QD
     Route: 048
     Dates: start: 20120529, end: 20120602
  8. TEMODAL [Suspect]
     Active Substance: TEMOZOLOMIDE
     Dosage: 150 MG/M2, QD
     Route: 048
     Dates: start: 20121024, end: 20121028
  9. TEMODAL [Suspect]
     Active Substance: TEMOZOLOMIDE
     Dosage: 200 MG/M2, QD
     Route: 048
     Dates: start: 20130227, end: 20130303
  10. BAKTAR [Suspect]
     Active Substance: SULFAMETHOXAZOLE\TRIMETHOPRIM
     Indication: ANTIFUNGAL PROPHYLAXIS
     Dosage: DAILY DOSE 1 DOSAGE FORM, DIVIDED DOSE FREQUENCY UNKNOWN
     Route: 048
     Dates: start: 20120213, end: 20120228
  11. TEMODAL [Suspect]
     Active Substance: TEMOZOLOMIDE
     Indication: GLIOBLASTOMA MULTIFORME
     Dosage: 75 MG/M2, QD
     Route: 048
     Dates: start: 20120209, end: 20120308
  12. TEMODAL [Suspect]
     Active Substance: TEMOZOLOMIDE
     Dosage: 150 MG/M2, QD
     Route: 048
     Dates: start: 20120423, end: 20120427
  13. TEMODAL [Suspect]
     Active Substance: TEMOZOLOMIDE
     Dosage: 150 MG/M2, QD
     Route: 048
     Dates: start: 20120627, end: 20120701
  14. TEMOZOLOMIDE. [Suspect]
     Active Substance: TEMOZOLOMIDE
     Indication: GLIOBLASTOMA MULTIFORME
     Dosage: 75 MG/M2, QD
     Route: 041
     Dates: start: 20120202, end: 20120208
  15. GASTER [Suspect]
     Active Substance: FAMOTIDINE
     Indication: PROPHYLAXIS
     Dosage: DAILY DOSE 40 MG, POR, DIVIDED DOSE FREQUENCY UNKNOWN
     Route: 048
     Dates: start: 20120118, end: 20120227
  16. ALEVIATIN [Concomitant]
     Active Substance: PHENYTOIN SODIUM
     Indication: PROPHYLAXIS
     Dosage: DAILY DOSAGE UNKNOWN, FORMULATION POR
     Route: 048
     Dates: start: 20120111, end: 20120125

REACTIONS (4)
  - Rash [Recovered/Resolved]
  - White blood cell count decreased [Not Recovered/Not Resolved]
  - Lymphocyte count decreased [Recovered/Resolved]
  - Disease progression [Fatal]

NARRATIVE: CASE EVENT DATE: 20120202
